FAERS Safety Report 4942796-6 (Version None)
Quarter: 2006Q1

REPORT INFORMATION
  Report Type: 
  Country: None (occurrence: None)
  Receive Date: 20060314
  Receipt Date: 20060308
  Transmission Date: 20060701
  Serious: Yes (Death)
  Sender: FDA-Public Use
  Company Number: CA-JNJFOC-20060202108

PATIENT
  Age: 43 Year
  Sex: Male

DRUGS (3)
  1. DURAGESIC-100 [Suspect]
     Indication: DETOXIFICATION
     Route: 062
  2. CLONIDINE [Concomitant]
  3. HYDROMORPHONE HCL [Concomitant]

REACTIONS (4)
  - COMPLETED SUICIDE [None]
  - DRUG INEFFECTIVE [None]
  - DRUG INEFFECTIVE FOR UNAPPROVED INDICATION [None]
  - PHARMACEUTICAL PRODUCT COMPLAINT [None]
